FAERS Safety Report 6656420-8 (Version None)
Quarter: 2010Q1

REPORT INFORMATION
  Report Type: 
  Country: None (occurrence: None)
  Receive Date: 20100324
  Receipt Date: 20100315
  Transmission Date: 20100710
  Serious: Yes (Life-Threatening, Hospitalization, Other)
  Sender: FDA-Public Use
  Company Number: 2009-201153-NL

PATIENT
  Age: 42 Year
  Sex: Female
  Weight: 84.8226 kg

DRUGS (20)
  1. NUVARING [Suspect]
     Indication: CONTRACEPTION
     Dosage: 1 DF
     Dates: start: 20080221, end: 20080722
  2. NUVARING [Suspect]
  3. RITALIN [Concomitant]
  4. ADDERALL 30 [Concomitant]
  5. WELLBUTRIN [Concomitant]
  6. INDERAL [Concomitant]
  7. XANAX [Concomitant]
  8. CALCIUM CITRATE [Concomitant]
  9. CELEXA [Concomitant]
  10. VITAMIN B-12 [Concomitant]
  11. CLARITIN [Concomitant]
  12. AMBIEN [Concomitant]
  13. PRAVACHOL [Concomitant]
  14. VICODIN [Concomitant]
  15. FLEXERIL [Concomitant]
  16. INDERAL [Concomitant]
  17. ATENOLOL [Concomitant]
  18. TYLENOL-500 [Concomitant]
  19. SUMATRIPTAN SUCCINATE [Concomitant]
  20. NEXIUM [Concomitant]

REACTIONS (56)
  - ABDOMINAL PAIN [None]
  - ANXIETY [None]
  - ATELECTASIS [None]
  - BACK PAIN [None]
  - BLOOD ALKALINE PHOSPHATASE INCREASED [None]
  - BREAST FIBROSIS [None]
  - CERVICAL CYST [None]
  - CONDITION AGGRAVATED [None]
  - CONSTIPATION [None]
  - DEEP VEIN THROMBOSIS [None]
  - DEPRESSION [None]
  - DERMAL CYST [None]
  - DIZZINESS [None]
  - DYSFUNCTIONAL UTERINE BLEEDING [None]
  - ECZEMA [None]
  - ELECTROCARDIOGRAM QT PROLONGED [None]
  - ELECTROCARDIOGRAM T WAVE ABNORMAL [None]
  - EMBOLISM [None]
  - FEAR [None]
  - FEAR OF DEATH [None]
  - FIBROCYSTIC BREAST DISEASE [None]
  - GENITAL HERPES [None]
  - GENITAL PAIN [None]
  - HAEMATOCRIT DECREASED [None]
  - HAEMATOMA [None]
  - HAEMOGLOBIN DECREASED [None]
  - HEADACHE [None]
  - HYPOTENSION [None]
  - INNER EAR DISORDER [None]
  - INSOMNIA [None]
  - INTERNATIONAL NORMALISED RATIO INCREASED [None]
  - MENSTRUATION IRREGULAR [None]
  - MIGRAINE [None]
  - MUSCULOSKELETAL PAIN [None]
  - NECK PAIN [None]
  - OSTEOMA [None]
  - OTITIS EXTERNA [None]
  - POST PROCEDURAL COMPLICATION [None]
  - POST PROCEDURAL HAEMORRHAGE [None]
  - PROCEDURAL PAIN [None]
  - PROTHROMBIN TIME PROLONGED [None]
  - PULMONARY EMBOLISM [None]
  - RASH [None]
  - RESPIRATORY GAS EXCHANGE DISORDER [None]
  - RHINITIS ALLERGIC [None]
  - ROAD TRAFFIC ACCIDENT [None]
  - SEROMA [None]
  - SKIN DISCOLOURATION [None]
  - TINNITUS [None]
  - URINE OUTPUT DECREASED [None]
  - VAGINAL DISCHARGE [None]
  - VAGINAL HAEMORRHAGE [None]
  - VENA CAVA THROMBOSIS [None]
  - VERTIGO [None]
  - VULVOVAGINAL PRURITUS [None]
  - WHITE BLOOD CELL COUNT INCREASED [None]
